FAERS Safety Report 10616852 (Version 3)
Quarter: 2014Q4

REPORT INFORMATION
  Report Type: Spontaneous
  Country: CH (occurrence: CH)
  Receive Date: 20141201
  Receipt Date: 20141230
  Transmission Date: 20150529
  Serious: Yes (Life-Threatening, Hospitalization)
  Sender: FDA-Public Use
  Company Number: PHHY2014CH156321

PATIENT
  Sex: Female

DRUGS (14)
  1. SALVIA [Concomitant]
     Indication: PRODUCT USED FOR UNKNOWN INDICATION
     Dosage: 25 ML
     Route: 048
  2. MAGNESIUM DIASPORAL 300 [Concomitant]
     Indication: PRODUCT USED FOR UNKNOWN INDICATION
     Dosage: 1 DF
     Route: 048
  3. ATACAND [Concomitant]
     Active Substance: CANDESARTAN CILEXETIL
     Indication: PRODUCT USED FOR UNKNOWN INDICATION
     Dosage: 1 DF
     Route: 048
  4. LEPONEX [Suspect]
     Active Substance: CLOZAPINE
     Dosage: 150 MG, QD
     Route: 065
  5. EUTHYROX [Concomitant]
     Active Substance: LEVOTHYROXINE SODIUM
     Indication: THYROID DISORDER
     Dosage: 0.5 DF
     Route: 048
  6. LEPONEX [Suspect]
     Active Substance: CLOZAPINE
     Indication: SCHIZOPHRENIA, PARANOID TYPE
     Dosage: UNK
     Route: 065
     Dates: start: 201410
  7. BILOL [Concomitant]
     Active Substance: BISOPROLOL
     Indication: HEART RATE INCREASED
  8. PANTOPRAZOL NYCOMED [Concomitant]
     Active Substance: PANTOPRAZOLE SODIUM
     Indication: PRODUCT USED FOR UNKNOWN INDICATION
     Dosage: 1 DF
     Route: 048
  9. CLOPIN ECO [Concomitant]
     Active Substance: CLOZAPINE
     Indication: NERVOUS SYSTEM DISORDER
     Dosage: 100 MG, QD
     Route: 048
  10. LEPONEX [Suspect]
     Active Substance: CLOZAPINE
     Dosage: 200 MG, QD
     Route: 065
  11. BILOL [Concomitant]
     Active Substance: BISOPROLOL
     Indication: BLOOD PRESSURE INCREASED
     Dosage: 0.5 DF
     Route: 048
  12. ETHANOL [Concomitant]
     Active Substance: ALCOHOL
     Indication: PRODUCT USED FOR UNKNOWN INDICATION
     Dosage: 25 ML
     Route: 048
  13. ESIDREX [Concomitant]
     Active Substance: HYDROCHLOROTHIAZIDE
     Indication: BLOOD PRESSURE INCREASED
     Dosage: 1 DF
     Route: 048
  14. CLOPIN ECO [Concomitant]
     Active Substance: CLOZAPINE
     Dosage: 25 MG, BID
     Route: 048

REACTIONS (7)
  - Hypoventilation [Recovering/Resolving]
  - Somnolence [Unknown]
  - Salivary hypersecretion [Recovering/Resolving]
  - Dyspnoea [Recovering/Resolving]
  - Ocular discomfort [Recovering/Resolving]
  - Coma [Recovering/Resolving]
  - Muscle twitching [Recovering/Resolving]

NARRATIVE: CASE EVENT DATE: 20141118
